FAERS Safety Report 9406813 (Version 1)
Quarter: 2013Q3

REPORT INFORMATION
  Report Type: Spontaneous
  Country: JP (occurrence: JP)
  Receive Date: 20130718
  Receipt Date: 20130718
  Transmission Date: 20140515
  Serious: Yes (Other)
  Sender: FDA-Public Use
  Company Number: PHHY2013JP055818

PATIENT
  Sex: Male

DRUGS (5)
  1. DIOVAN [Suspect]
     Dosage: 160 MG, DAILY
     Route: 048
  2. ADALAT CR [Concomitant]
     Indication: HYPERTENSION
     Dosage: 1 DF, (40 MG) N THE EVENING
     Route: 048
  3. ADALAT L [Concomitant]
     Indication: HYPERTENSION
     Dosage: 40 MG, (20 MG DAILY IN TWO DOSES)
  4. DEPAS [Concomitant]
     Indication: ANXIETY
     Dosage: 2 DF, DAILY
  5. LENDORMIN [Concomitant]
     Indication: ANXIETY
     Dosage: 2 DF, DAILY
     Route: 048

REACTIONS (3)
  - Neoplasm malignant [Unknown]
  - Poor quality sleep [Unknown]
  - Drug ineffective [Unknown]
